FAERS Safety Report 9404773 (Version 1)
Quarter: 2013Q3

REPORT INFORMATION
  Report Type: Spontaneous
  Country: US (occurrence: US)
  Receive Date: 20130717
  Receipt Date: 20130717
  Transmission Date: 20140515
  Serious: No
  Sender: FDA-Public Use
  Company Number: US-BAYER-2013-086299

PATIENT
  Age: 52 Year
  Sex: Male

DRUGS (2)
  1. LEVITRA [Suspect]
     Dosage: 20 MG, UNK
     Route: 048
     Dates: start: 20110630
  2. LOSARTAN [Concomitant]
     Dosage: 50 MG, QD
     Route: 048

REACTIONS (1)
  - Drug ineffective [None]
